FAERS Safety Report 21435684 (Version 1)
Quarter: 2022Q4

REPORT INFORMATION
  Report Type: Spontaneous
  Country: US (occurrence: US)
  Receive Date: 20221010
  Receipt Date: 20221010
  Transmission Date: 20230112
  Serious: Yes (Other)
  Sender: FDA-Public Use
  Company Number: US-GLAXOSMITHKLINE-US2022AMR141811

PATIENT

DRUGS (2)
  1. BLENREP [Suspect]
     Active Substance: BELANTAMAB MAFODOTIN-BLMF
     Indication: Plasma cell myeloma
     Dosage: 2.5 MG/KG
     Route: 042
  2. BLENREP [Suspect]
     Active Substance: BELANTAMAB MAFODOTIN-BLMF
     Dosage: 1.9 MG/KG
     Route: 042

REACTIONS (10)
  - Hypermetropia [Recovered/Resolved]
  - Visual impairment [Recovered/Resolved]
  - Corneal thickening [Recovered/Resolved]
  - Corneal epithelial microcysts [Recovered/Resolved]
  - Corneal opacity [Recovered/Resolved]
  - Corneal disorder [Recovered/Resolved]
  - Corneal cyst [Recovered/Resolved]
  - Condition aggravated [Recovered/Resolved]
  - Keratopathy [Recovered/Resolved]
  - Disease recurrence [Recovered/Resolved]
